FAERS Safety Report 20254605 (Version 2)
Quarter: 2022Q1

REPORT INFORMATION
  Report Type: Report from Study
  Country: JP (occurrence: JP)
  Receive Date: 20211230
  Receipt Date: 20220126
  Transmission Date: 20220423
  Serious: Yes (Death, Other)
  Sender: FDA-Public Use
  Company Number: JP-ALNYLAM PHARMACEUTICALS, INC.-ALN-2021-003516

PATIENT

DRUGS (25)
  1. ONPATTRO [Suspect]
     Active Substance: PATISIRAN SODIUM
     Indication: Hereditary neuropathic amyloidosis
     Dosage: 16.8 MILLIGRAM
     Route: 041
     Dates: start: 20191017, end: 20191017
  2. ONPATTRO [Suspect]
     Active Substance: PATISIRAN SODIUM
     Dosage: 18 MILLIGRAM
     Route: 041
     Dates: start: 20191107, end: 20200109
  3. ONPATTRO [Suspect]
     Active Substance: PATISIRAN SODIUM
     Dosage: 16.5 MILLIGRAM
     Route: 041
     Dates: start: 20200130, end: 20200312
  4. ONPATTRO [Suspect]
     Active Substance: PATISIRAN SODIUM
     Dosage: 15.6 MILLIGRAM
     Route: 041
     Dates: start: 20200402, end: 20200402
  5. ONPATTRO [Suspect]
     Active Substance: PATISIRAN SODIUM
     Dosage: 15.9 MILLIGRAM
     Route: 041
     Dates: start: 20200423, end: 20200514
  6. ONPATTRO [Suspect]
     Active Substance: PATISIRAN SODIUM
     Dosage: 15.8 MILLIGRAM
     Route: 041
     Dates: start: 20200604, end: 20200604
  7. ONPATTRO [Suspect]
     Active Substance: PATISIRAN SODIUM
     Dosage: 15.7 MILLIGRAM
     Route: 041
     Dates: start: 20200625, end: 20200625
  8. ONPATTRO [Suspect]
     Active Substance: PATISIRAN SODIUM
     Dosage: 15.5 MILLIGRAM
     Route: 041
     Dates: start: 20200716, end: 20200716
  9. ONPATTRO [Suspect]
     Active Substance: PATISIRAN SODIUM
     Dosage: 15.3 MILLIGRAM
     Route: 041
     Dates: start: 20200806, end: 20200917
  10. ONPATTRO [Suspect]
     Active Substance: PATISIRAN SODIUM
     Dosage: 15 MILLIGRAM
     Route: 041
     Dates: start: 20201008, end: 20201008
  11. ONPATTRO [Suspect]
     Active Substance: PATISIRAN SODIUM
     Dosage: UNK
     Route: 041
     Dates: end: 20210805
  12. DEXAMETHASONE SODIUM PHOSPHATE [Concomitant]
     Active Substance: DEXAMETHASONE SODIUM PHOSPHATE
     Indication: Prophylaxis
     Dosage: 9.9 MILLIGRAM, SINGLE
     Route: 065
     Dates: start: 20191107
  13. POLARAMINE [Concomitant]
     Active Substance: DEXCHLORPHENIRAMINE MALEATE
     Indication: Prophylaxis
     Dosage: 5 MILLIGRAM, SINGLE
     Route: 065
     Dates: start: 20191107
  14. FAMOTIDINE [Concomitant]
     Active Substance: FAMOTIDINE
     Indication: Prophylaxis
     Dosage: 20 MILLIGRAM, SINGLE
     Route: 065
     Dates: start: 20191107
  15. CALONAL [Concomitant]
     Active Substance: ACETAMINOPHEN
     Indication: Prophylaxis
     Dosage: 500 MILLIGRAM, SINGLE
     Route: 065
     Dates: start: 20191107
  16. VITAMINS [Concomitant]
     Active Substance: VITAMINS
     Indication: Prophylaxis
     Dosage: 1 GRAM, QD
     Route: 065
     Dates: start: 20191107
  17. SAMSCA [Concomitant]
     Active Substance: TOLVAPTAN
     Indication: Hereditary neuropathic amyloidosis
     Dosage: 7.5 MILLIGRAM, QD
     Route: 065
  18. AZOSEMIDE [Concomitant]
     Active Substance: AZOSEMIDE
     Indication: Hereditary neuropathic amyloidosis
     Dosage: 60 MILLIGRAM, QD
     Route: 065
  19. FEBUXOSTAT [Concomitant]
     Active Substance: FEBUXOSTAT
     Indication: Hereditary neuropathic amyloidosis
     Dosage: 10 MILLIGRAM, QD
     Route: 065
  20. BISOPROLOL FUMARATE [Concomitant]
     Active Substance: BISOPROLOL FUMARATE
     Indication: Hereditary neuropathic amyloidosis
     Dosage: 0.625 MILLIGRAM, QD
     Route: 065
  21. LANSOPRAZOLE [Concomitant]
     Active Substance: LANSOPRAZOLE
     Indication: Hereditary neuropathic amyloidosis
     Dosage: 15 MILLIGRAM, QD
     Route: 065
  22. LYRICA [Concomitant]
     Active Substance: PREGABALIN
     Indication: Hereditary neuropathic amyloidosis
     Dosage: 66 MILLIGRAM, TID
     Route: 048
  23. NAFTOPIDIL [Concomitant]
     Active Substance: NAFTOPIDIL
     Indication: Hereditary neuropathic amyloidosis
     Dosage: 32.5 MILLIGRAM, QD
     Route: 065
  24. DROXIDOPA [Concomitant]
     Active Substance: DROXIDOPA
     Indication: Hereditary neuropathic amyloidosis
     Dosage: 300 MILLIGRAM, TID
     Route: 065
  25. CYMBALTA [Concomitant]
     Active Substance: DULOXETINE HYDROCHLORIDE
     Indication: Hereditary neuropathic amyloidosis
     Dosage: 60 MILLIGRAM, QD
     Route: 065

REACTIONS (2)
  - Cardiac disorder [Fatal]
  - Therapy interrupted [Unknown]

NARRATIVE: CASE EVENT DATE: 20210805
